FAERS Safety Report 4369880-2 (Version None)
Quarter: 2004Q2

REPORT INFORMATION
  Report Type: 
  Country: None (occurrence: None)
  Receive Date: 20040527
  Receipt Date: 20040507
  Transmission Date: 20050107
  Serious: Yes (Hospitalization)
  Sender: FDA-Public Use
  Company Number: GBS040314634

PATIENT
  Age: 65 Year
  Sex: Female

DRUGS (8)
  1. FLUOXETINE [Suspect]
     Indication: DEPRESSION
     Dosage: 40 MG DAY
     Dates: start: 20020901
  2. REDUCTIL (SIBUTRAMINE HYDROCHLORIDE) [Concomitant]
  3. ASPIRIN [Concomitant]
  4. GLYCERYL TRINITRATE [Concomitant]
  5. DILTIAZEM HYDROCHLORIDE [Concomitant]
  6. ATORVASTATIN CALCIUM [Concomitant]
  7. PROPRANOLOL [Concomitant]
  8. ISOSORBIDE MONONITRATE [Concomitant]

REACTIONS (3)
  - DELUSION [None]
  - EUPHORIC MOOD [None]
  - PSYCHOTIC DISORDER [None]
